FAERS Safety Report 7029237-2 (Version None)
Quarter: 2010Q3

REPORT INFORMATION
  Report Type: 
  Country: None (occurrence: None)
  Receive Date: 20100930
  Receipt Date: 20100917
  Transmission Date: 20110219
  Serious: Yes (Hospitalization, Other)
  Sender: FDA-Public Use
  Company Number: 019002

PATIENT
  Sex: Male
  Weight: 52.6173 kg

DRUGS (6)
  1. CIMZIA [Suspect]
     Indication: CROHN'S DISEASE
     Dosage: 40 MG 1X/2WEEKS SUBCUTANEOUS, SUBCUTANEOUS, 400 MG 1X/MONTH SUBCUTANEOUS
     Route: 058
     Dates: start: 20091203, end: 20091217
  2. CIMZIA [Suspect]
     Indication: CROHN'S DISEASE
     Dosage: 40 MG 1X/2WEEKS SUBCUTANEOUS, SUBCUTANEOUS, 400 MG 1X/MONTH SUBCUTANEOUS
     Route: 058
     Dates: start: 20091231
  3. CIMZIA [Suspect]
     Indication: CROHN'S DISEASE
     Dosage: 40 MG 1X/2WEEKS SUBCUTANEOUS, SUBCUTANEOUS, 400 MG 1X/MONTH SUBCUTANEOUS
     Route: 058
     Dates: start: 20100128
  4. FLAGYL [Concomitant]
  5. PREDNISONE [Concomitant]
  6. BUDESONIDE [Concomitant]

REACTIONS (1)
  - PERIRECTAL ABSCESS [None]
